FAERS Safety Report 12810676 (Version 1)
Quarter: 2016Q4

REPORT INFORMATION
  Report Type: Spontaneous
  Country: US (occurrence: US)
  Receive Date: 20161005
  Receipt Date: 20161005
  Transmission Date: 20170207
  Serious: No
  Sender: FDA-Public Use
  Company Number: GXBR2016US000445

PATIENT
  Age: 44 Year
  Sex: Female
  Weight: 72.56 kg

DRUGS (1)
  1. BUPROPION HCI TABLETS EXTENDED-RELEASE [Suspect]
     Active Substance: BUPROPION HYDROCHLORIDE
     Indication: SMOKING CESSATION THERAPY
     Dosage: 150 MG, UNK
     Route: 048

REACTIONS (3)
  - Wheezing [Unknown]
  - Drug ineffective [Not Recovered/Not Resolved]
  - Depression [Unknown]

NARRATIVE: CASE EVENT DATE: 20151225
